FAERS Safety Report 7889065-2 (Version None)
Quarter: 2011Q4

REPORT INFORMATION
  Report Type: 
  Country: None (occurrence: None)
  Receive Date: 20111101
  Receipt Date: 20111020
  Transmission Date: 20120403
  Serious: Yes (Hospitalization)
  Sender: FDA-Public Use
  Company Number: DSJ-2011-22823

PATIENT
  Age: 62 Year
  Sex: Female

DRUGS (3)
  1. BENICAR HCT [Suspect]
     Indication: HYPERTENSION
     Dosage: 20/12.5 MG (1 IN 1 D) PER ORAL
     Route: 048
     Dates: start: 20110401
  2. METOPROLOL SUCCINATE [Concomitant]
  3. SIMVASTATIN [Concomitant]

REACTIONS (2)
  - GASTROINTESTINAL DISORDER [None]
  - DIZZINESS [None]
